FAERS Safety Report 10477330 (Version 1)
Quarter: 2014Q3

REPORT INFORMATION
  Report Type: Spontaneous
  Country: US (occurrence: None)
  Receive Date: 20140925
  Receipt Date: 20140925
  Transmission Date: 20150326
  Serious: Yes (Other)
  Sender: FDA-Public Use
  Company Number: None

PATIENT
  Age: 29 Year
  Sex: Male

DRUGS (1)
  1. NICOTINE. [Suspect]
     Active Substance: NICOTINE
     Indication: SMOKING CESSATION THERAPY
     Dates: start: 20140804, end: 20140915

REACTIONS (8)
  - Application site scar [None]
  - Application site pruritus [None]
  - Product quality issue [None]
  - Skin irritation [None]
  - Application site irritation [None]
  - Application site urticaria [None]
  - Application site erythema [None]
  - Product substitution issue [None]

NARRATIVE: CASE EVENT DATE: 20140804
